FAERS Safety Report 8442809-3 (Version None)
Quarter: 2012Q2

REPORT INFORMATION
  Report Type: 
  Country: None (occurrence: None)
  Receive Date: 20120323
  Receipt Date: 20110712
  Transmission Date: 20120825
  Serious: Yes (Hospitalization)
  Sender: FDA-Public Use
  Company Number: 163-21880-11061342

PATIENT
  Age: 83 Year
  Sex: Female
  Weight: 64.4108 kg

DRUGS (14)
  1. REVLIMID [Suspect]
     Indication: MYELODYSPLASTIC SYNDROME
     Dosage: 10 MG, 1 IN 1 D, PO; 10 MG, DAILY FOR 28 DAYS, PO
     Route: 048
     Dates: start: 20101201
  2. REVLIMID [Suspect]
     Indication: MYELODYSPLASTIC SYNDROME
     Dosage: 10 MG, 1 IN 1 D, PO; 10 MG, DAILY FOR 28 DAYS, PO
     Route: 048
     Dates: start: 20071105
  3. MODIUM (LOPERAMIDE HYDROCHLORIDE) [Concomitant]
  4. CITRACAL (CALCIUM CITRATE) [Concomitant]
  5. LEVOTHYROXINE SODIUM [Concomitant]
  6. ATACAND [Concomitant]
  7. TOPROL-XL [Concomitant]
  8. CLARITIN [Concomitant]
  9. SPIRONOLACTONE [Concomitant]
  10. CENTRUM SILVER (CENTRIUM SILVER) [Concomitant]
  11. MUCINEX [Concomitant]
  12. RECLAST [Concomitant]
  13. NEXIUM [Concomitant]
  14. NITRO-DUR (GLYCERYL TRINTRATE) [Concomitant]

REACTIONS (4)
  - PLATELET COUNT DECREASED [None]
  - WHITE BLOOD CELL COUNT DECREASED [None]
  - RED BLOOD CELL COUNT DECREASED [None]
  - PNEUMONIA [None]
